FAERS Safety Report 15004315 (Version 1)
Quarter: 2018Q2

REPORT INFORMATION
  Report Type: Spontaneous
  Country: ES (occurrence: ES)
  Receive Date: 20180613
  Receipt Date: 20180613
  Transmission Date: 20180711
  Serious: Yes (Other)
  Sender: FDA-Public Use
  Company Number: ES-IPSEN BIOPHARMACEUTICALS, INC.-2018-08560

PATIENT
  Age: 44 Year
  Sex: Male

DRUGS (3)
  1. SOMATULINE AUTOGEL 120MG [Suspect]
     Active Substance: LANREOTIDE ACETATE
     Dosage: 120 MG
     Route: 065
     Dates: start: 201609
  2. SOMATULINE AUTOGEL 120MG [Suspect]
     Active Substance: LANREOTIDE ACETATE
     Dosage: 120 MG
     Route: 065
     Dates: start: 201507, end: 201609
  3. SOMATULINE AUTOGEL 120MG [Suspect]
     Active Substance: LANREOTIDE ACETATE
     Indication: CARCINOID SYNDROME
     Dosage: 120 MG
     Route: 065
     Dates: start: 201407, end: 201507

REACTIONS (3)
  - Inappropriate schedule of drug administration [Unknown]
  - Disease progression [Recovering/Resolving]
  - Liver transplant [Unknown]

NARRATIVE: CASE EVENT DATE: 201507
